FAERS Safety Report 16029013 (Version 1)
Quarter: 2019Q1

REPORT INFORMATION
  Report Type: Spontaneous
  Country: US (occurrence: US)
  Receive Date: 20190301
  Receipt Date: 20190301
  Transmission Date: 20190418
  Serious: Yes (Hospitalization, Other)
  Sender: FDA-Public Use
  Company Number: None

PATIENT
  Age: 63 Year
  Sex: Female
  Weight: 76.5 kg

DRUGS (1)
  1. BACTOSHIELD CHG CHLORHEXIDINE GLUCONATE SOLUTION [Suspect]
     Active Substance: CHLORHEXIDINE GLUCONATE
     Indication: PREOPERATIVE CARE
     Dosage: ?          OTHER STRENGTH:4%;QUANTITY:1 4 FLUID OZ.;OTHER FREQUENCY:PRIOR TO SURGICAL;?
     Route: 061
     Dates: start: 20181119, end: 20181119

REACTIONS (3)
  - Product formulation issue [None]
  - Clavicle fracture [None]
  - Fall [None]

NARRATIVE: CASE EVENT DATE: 20181119
